FAERS Safety Report 9548243 (Version 1)
Quarter: 2013Q2

REPORT INFORMATION
  Report Type: Spontaneous
  Country: US (occurrence: None)
  Receive Date: 20130627
  Receipt Date: 20130627
  Transmission Date: 20140414
  Serious: Yes (Other)
  Sender: FDA-Public Use
  Company Number: 1000043488

PATIENT
  Age: 72 Year
  Sex: Female

DRUGS (8)
  1. LIZNESS [Suspect]
     Indication: CONSTIPATION
     Route: 048
     Dates: start: 20130128
  2. SENOKOT-S (SENOKOT-S) (SENOKOT0S) [Concomitant]
  3. ALPRAZOLAM (ALPRAZOLAM) (ALPRAZOLAM) [Concomitant]
  4. VIT D (ERGOCALCIFEROL) (ERGOCALCIGEROL) [Concomitant]
  5. ASPIRIN (ACETYLSALICYLIC ACID) [Concomitant]
  6. ZANTAC (RANITIDINE HYDROCHLORIDE) (RANITIDINE HYDROCHLORIDE) [Concomitant]
  7. PREMARIN (ESTROGENS CONJUGATED) (ESTROGENS CONJUGATED) [Concomitant]
  8. RAMIPRIL (RAMIPROL) (RAMIPRIL) [Concomitant]

REACTIONS (1)
  - Drug ineffective [None]
